APPROVED DRUG PRODUCT: TAZICEF
Active Ingredient: CEFTAZIDIME
Strength: 1GM/VIAL
Dosage Form/Route: INJECTABLE;INJECTION
Application: A064032 | Product #001 | TE Code: AP
Applicant: HOSPIRA INC
Approved: Oct 31, 1993 | RLD: No | RS: No | Type: RX